FAERS Safety Report 6931373-3 (Version None)
Quarter: 2010Q3

REPORT INFORMATION
  Report Type: 
  Country: None (occurrence: None)
  Receive Date: 20100819
  Receipt Date: 20100722
  Transmission Date: 20110219
  Serious: No
  Sender: FDA-Public Use
  Company Number: US-JNJFOC-20100708013

PATIENT
  Sex: Female

DRUGS (3)
  1. INVEGA [Suspect]
     Indication: PRODUCT USED FOR UNKNOWN INDICATION
     Route: 048
  2. ZESTRIL [Suspect]
     Indication: PRODUCT USED FOR UNKNOWN INDICATION
  3. PROPRANOLOL [Suspect]
     Indication: PRODUCT USED FOR UNKNOWN INDICATION

REACTIONS (2)
  - AKATHISIA [None]
  - BLOOD PRESSURE FLUCTUATION [None]
